FAERS Safety Report 11952443 (Version 2)
Quarter: 2016Q2

REPORT INFORMATION
  Report Type: Spontaneous
  Country: US (occurrence: US)
  Receive Date: 20160126
  Receipt Date: 20160512
  Transmission Date: 20160815
  Serious: No
  Sender: FDA-Public Use
  Company Number: US-CELGENEUS-USA-2016014092

PATIENT
  Age: 68 Year
  Sex: Male
  Weight: 54.8 kg

DRUGS (2)
  1. GEMZAR [Concomitant]
     Active Substance: GEMCITABINE HYDROCHLORIDE
     Indication: NEOPLASM MALIGNANT
     Route: 065
  2. ABRAXANE [Suspect]
     Active Substance: PACLITAXEL
     Indication: PANCREATIC CARCINOMA
     Dosage: 201 MILLIGRAM/SQ. METER
     Route: 041

REACTIONS (1)
  - Unevaluable event [Recovered/Resolved]

NARRATIVE: CASE EVENT DATE: 20160119
